FAERS Safety Report 7284197-4 (Version None)
Quarter: 2011Q1

REPORT INFORMATION
  Report Type: 
  Country: None (occurrence: None)
  Receive Date: 20110127
  Receipt Date: 20110112
  Transmission Date: 20110831
  Serious: Yes (Other)
  Sender: FDA-Public Use
  Company Number: 2010P1003676

PATIENT
  Age: 70 Year
  Sex: Female

DRUGS (7)
  1. CAVAN X (NO PREF. NAME) [Suspect]
     Indication: VITAMIN SUPPLEMENTATION
     Dosage: 1 TABLET;BID
     Dates: start: 20101218, end: 20101227
  2. ARICEPT [Concomitant]
  3. PEPCID [Concomitant]
  4. XANAX [Concomitant]
  5. CLONIDINE [Concomitant]
  6. CELEXA [Concomitant]
  7. AMLODIPINE [Concomitant]

REACTIONS (1)
  - DRUG HYPERSENSITIVITY [None]
